FAERS Safety Report 9203192 (Version 1)
Quarter: 2013Q1

REPORT INFORMATION
  Report Type: Spontaneous
  Country: US (occurrence: None)
  Receive Date: 20120709
  Receipt Date: 20120709
  Transmission Date: 20140127
  Serious: Yes (Other)
  Sender: FDA-Public Use
  Company Number: PHEH2011US02021

PATIENT
  Age: 75 Year
  Sex: Male

DRUGS (2)
  1. GLEEVEC (IMATINIB) [Suspect]
     Indication: CHRONIC MYELOID LEUKAEMIA
     Route: 048
     Dates: start: 20110111
  2. DRUG THERAPY NOS (DRUG THERAPY NOS) [Concomitant]

REACTIONS (7)
  - Fluid retention [None]
  - Weight decreased [None]
  - Heart rate decreased [None]
  - Diarrhoea [None]
  - Hypotension [None]
  - Rash [None]
  - Drug ineffective [None]
